FAERS Safety Report 25430879 (Version 4)
Quarter: 2025Q3

REPORT INFORMATION
  Report Type: Report from Study
  Country: JP (occurrence: JP)
  Receive Date: 20250612
  Receipt Date: 20250818
  Transmission Date: 20251021
  Serious: Yes (Death, Other)
  Sender: ASTELLAS
  Company Number: JP-ASTELLAS-2025-AER-030904

PATIENT
  Age: 64 Year
  Sex: Male

DRUGS (5)
  1. PADCEV [Suspect]
     Active Substance: ENFORTUMAB VEDOTIN-EJFV
     Indication: Malignant neoplasm of renal pelvis
     Route: 065
     Dates: start: 20250228
  2. PADCEV [Suspect]
     Active Substance: ENFORTUMAB VEDOTIN-EJFV
     Route: 065
     Dates: start: 202504
  3. PEMBROLIZUMAB [Suspect]
     Active Substance: PEMBROLIZUMAB
     Indication: Malignant neoplasm of renal pelvis
     Route: 065
  4. CLOBETASOL [Concomitant]
     Active Substance: CLOBETASOL
     Indication: Erythema
     Route: 061
  5. CLOBETASOL [Concomitant]
     Active Substance: CLOBETASOL
     Indication: Skin erosion

REACTIONS (18)
  - Malignant neoplasm progression [Fatal]
  - Metastases to liver [Unknown]
  - Infusion site extravasation [Recovered/Resolved]
  - Erythema [Unknown]
  - Erythema [Unknown]
  - Skin erosion [Unknown]
  - Erythema [Unknown]
  - Purpura [Unknown]
  - Interstitial lung disease [Fatal]
  - Skin exfoliation [Unknown]
  - Skin disorder [Unknown]
  - Abdominal discomfort [Recovering/Resolving]
  - Hypotension [Not Recovered/Not Resolved]
  - Pain [Unknown]
  - Hypoaesthesia [Unknown]
  - Blood creatinine increased [Recovering/Resolving]
  - Nausea [Recovering/Resolving]
  - Diarrhoea [Recovering/Resolving]

NARRATIVE: CASE EVENT DATE: 20250301
